FAERS Safety Report 19116242 (Version 1)
Quarter: 2021Q2

REPORT INFORMATION
  Report Type: Spontaneous
  Country: US (occurrence: US)
  Receive Date: 20210409
  Receipt Date: 20210409
  Transmission Date: 20210717
  Serious: No
  Sender: FDA-Public Use
  Company Number: US-ASTELLAS-2021US003066

PATIENT
  Sex: Male

DRUGS (1)
  1. PROGRAF [Suspect]
     Active Substance: TACROLIMUS
     Indication: LIVER TRANSPLANT
     Dosage: 2 CAPSULES IN THE MORNING AND 1 CAPSULE IN THE EVENING, TWICE DAILY
     Route: 065
     Dates: start: 1993

REACTIONS (2)
  - Inflammation [Unknown]
  - Memory impairment [Unknown]
